FAERS Safety Report 6082232-2 (Version None)
Quarter: 2009Q1

REPORT INFORMATION
  Report Type: 
  Country: None (occurrence: None)
  Receive Date: 20090218
  Receipt Date: 20090209
  Transmission Date: 20090719
  Serious: Yes (Hospitalization)
  Sender: FDA-Public Use
  Company Number: US-BIOGENIDEC-2007BI019820

PATIENT
  Age: 35 Year
  Sex: Male

DRUGS (3)
  1. TYSABRI [Suspect]
     Indication: MULTIPLE SCLEROSIS
     Route: 042
     Dates: start: 20070103
  2. EXCEDRIN [Concomitant]
     Indication: DRUG USE FOR UNKNOWN INDICATION
  3. PEPCID [Concomitant]
     Indication: ULCER

REACTIONS (2)
  - DUODENAL OBSTRUCTION [None]
  - DUODENAL ULCER PERFORATION [None]
